FAERS Safety Report 6583289-2 (Version None)
Quarter: 2010Q1

REPORT INFORMATION
  Report Type: 
  Country: None (occurrence: None)
  Receive Date: 20100216
  Receipt Date: 20100208
  Transmission Date: 20100710
  Serious: Yes (Death)
  Sender: FDA-Public Use
  Company Number: B0633662A

PATIENT
  Sex: Female
  Weight: 68 kg

DRUGS (1)
  1. SEROXAT [Suspect]
     Indication: DEPRESSION
     Dosage: 30MG PER DAY
     Dates: start: 20020301

REACTIONS (2)
  - DEATH [None]
  - SUICIDAL IDEATION [None]
